FAERS Safety Report 6681646-7 (Version None)
Quarter: 2010Q2

REPORT INFORMATION
  Report Type: 
  Country: None (occurrence: None)
  Receive Date: 20100414
  Receipt Date: 20100405
  Transmission Date: 20101027
  Serious: Yes (Other)
  Sender: FDA-Public Use
  Company Number: US-JNJCH-2010005220

PATIENT
  Age: 62 Year
  Sex: Male
  Weight: 77.1 kg

DRUGS (3)
  1. NEOSPORIN LT LIP TREATMENT [Suspect]
     Indication: LIP DRY
     Dosage: TEXT:ONE COATING ON TOP AND BOTTOM ONCE
     Route: 061
     Dates: start: 20100205, end: 20100205
  2. GEMFIBROZIL [Concomitant]
     Indication: BLOOD CHOLESTEROL
     Dosage: TEXT:ONE 600MG 2X A DAY
     Route: 065
  3. HYDROCHLOROTHIAZIDE [Concomitant]
     Indication: HYPERTENSION
     Dosage: TEXT:ONE 50MG 1X A DAY
     Route: 065

REACTIONS (3)
  - APPLICATION SITE BURN [None]
  - LIP BLISTER [None]
  - LIP PAIN [None]
